FAERS Safety Report 9712201 (Version 3)
Quarter: 2014Q1

REPORT INFORMATION
  Report Type: Report from Study
  Country: JP (occurrence: JP)
  Receive Date: 20131126
  Receipt Date: 20140221
  Transmission Date: 20141002
  Serious: Yes (Death, Life-Threatening, Hospitalization)
  Sender: FDA-Public Use
  Company Number: JP-SA-2013SA121707

PATIENT
  Age: 5 Year
  Sex: Female

DRUGS (4)
  1. EVOLTRA [Suspect]
     Indication: LANGERHANS^ CELL HISTIOCYTOSIS
     Dosage: 5MG/BODY
     Route: 042
     Dates: start: 20130830, end: 20130903
  2. EVOLTRA [Suspect]
     Indication: LANGERHANS^ CELL HISTIOCYTOSIS
     Dosage: 5MG/BODY
     Route: 042
     Dates: start: 20130917, end: 20130921
  3. EVOLTRA [Suspect]
     Indication: LANGERHANS^ CELL HISTIOCYTOSIS
     Dosage: 4.8MG/BODY
     Route: 042
     Dates: start: 20131016, end: 20131020
  4. EVOLTRA [Suspect]
     Indication: LANGERHANS^ CELL HISTIOCYTOSIS
     Dosage: 4.7 MG/BODY
     Route: 042
     Dates: start: 20131106, end: 20131110

REACTIONS (10)
  - Acute respiratory distress syndrome [Fatal]
  - White blood cell count decreased [Not Recovered/Not Resolved]
  - Neutrophil count decreased [Not Recovered/Not Resolved]
  - Platelet count decreased [Not Recovered/Not Resolved]
  - Febrile neutropenia [Recovering/Resolving]
  - Liver function test abnormal [Recovering/Resolving]
  - Pneumothorax [Not Recovered/Not Resolved]
  - Haemorrhage intracranial [Recovering/Resolving]
  - Histiocytosis haematophagic [Not Recovered/Not Resolved]
  - Lung infection [Not Recovered/Not Resolved]
